FAERS Safety Report 10468842 (Version 1)
Quarter: 2014Q3

REPORT INFORMATION
  Report Type: Report from Study
  Country: SI (occurrence: SI)
  Receive Date: 20140923
  Receipt Date: 20140923
  Transmission Date: 20150326
  Serious: Yes (Other)
  Sender: FDA-Public Use
  Company Number: SI-ACCORD-025938

PATIENT
  Age: 85 Year
  Sex: Male

DRUGS (12)
  1. DIGOXIN. [Concomitant]
     Active Substance: DIGOXIN
  2. CARVEDILOL/CARVEDILOL HYDROCHLODRIDE [Concomitant]
     Indication: PRODUCT USED FOR UNKNOWN INDICATION
  3. VALPROIC ACID. [Suspect]
     Active Substance: VALPROIC ACID
     Indication: PRODUCT USED FOR UNKNOWN INDICATION
  4. HYDROXYCARBAMIDE [Concomitant]
     Active Substance: HYDROXYUREA
     Indication: MYELOPROLIFERATIVE DISORDER
  5. PANTOPRAZOLE [Concomitant]
     Active Substance: PANTOPRAZOLE SODIUM
  6. LAMOTRIGINE. [Suspect]
     Active Substance: LAMOTRIGINE
     Indication: PRODUCT USED FOR UNKNOWN INDICATION
  7. FERRIC HYDROXIDE COLLOIDAL [Concomitant]
  8. CLOMETHIAZOLE/CLOMETHIAZOLE EDISILATE [Suspect]
     Active Substance: CLOMETHIAZOLE
     Indication: INSOMNIA
     Dosage: IN SINGLE EVENING DOSE
  9. ESCITALOPRAM [Suspect]
     Active Substance: ESCITALOPRAM OXALATE
     Indication: DEPRESSION
     Dosage: INITIALLY RECEIVED 5 MG DAILY THEN INCREASED TO 10MG DAILY.
  10. FLUPHENAZINE [Suspect]
     Active Substance: FLUPHENAZINE
     Indication: HALLUCINATION
  11. ACETYLSALICYLIC ACID [Concomitant]
     Active Substance: ASPIRIN
  12. QUETIAPINE [Suspect]
     Active Substance: QUETIAPINE
     Indication: PRODUCT USED FOR UNKNOWN INDICATION

REACTIONS (10)
  - Fatigue [Recovering/Resolving]
  - Hallucination, olfactory [None]
  - Insomnia [Recovering/Resolving]
  - Hallucination [Recovered/Resolved]
  - Restlessness [Recovering/Resolving]
  - Delirium [Recovered/Resolved with Sequelae]
  - Anxiety [Recovering/Resolving]
  - Disorientation [Recovering/Resolving]
  - Hallucination, visual [None]
  - Abulia [Recovering/Resolving]
